FAERS Safety Report 7491438-7 (Version None)
Quarter: 2011Q2

REPORT INFORMATION
  Report Type: 
  Country: None (occurrence: None)
  Receive Date: 20110519
  Receipt Date: 20110510
  Transmission Date: 20111010
  Serious: Yes (Hospitalization, Other)
  Sender: FDA-Public Use
  Company Number: PHHY2010US88632

PATIENT
  Sex: Female

DRUGS (8)
  1. SIMVASTATIN [Concomitant]
  2. CRANBERRY PILLS [Concomitant]
     Dosage: UNK
  3. GILENYA [Suspect]
     Dosage: 0.5 MG, QD
     Route: 048
     Dates: start: 20101215
  4. ABILIFY [Concomitant]
     Dosage: 2.5 MG, UNK
  5. VITAMIN D [Concomitant]
     Dosage: 50000 IU, QW
  6. LOVAZA [Concomitant]
     Dosage: UNK
  7. CYMBALTA [Concomitant]
     Dosage: 120 MG, UNK
  8. TYLENOL PM [Concomitant]
     Dosage: UNK

REACTIONS (3)
  - CONFUSIONAL STATE [None]
  - URINARY TRACT INFECTION [None]
  - DYSARTHRIA [None]
